FAERS Safety Report 8603051 (Version 2)
Quarter: 2013Q1

REPORT INFORMATION
  Report Type: Other
  Country: GB (occurrence: GB)
  Receive Date: 20120607
  Receipt Date: 20130128
  Transmission Date: 20140127
  Serious: Yes (Other)
  Sender: FDA-Public Use
  Company Number: GB-WATSON-2012-09432

PATIENT
  Age: 46 Year
  Sex: Male

DRUGS (3)
  1. LEVETIRACETAM (UNKNOWN) [Suspect]
     Indication: EPILEPSY
     Dosage: UNK
     Route: 048
     Dates: start: 20090401
  2. SERETIDE [Concomitant]
     Indication: ASTHMA
     Dosage: UNK
     Route: 065
  3. SALBUTAMOL [Concomitant]
     Indication: ASTHMA
     Dosage: UNK
     Route: 065

REACTIONS (3)
  - Cough [Unknown]
  - Wheezing [Unknown]
  - Dysgeusia [Unknown]
